FAERS Safety Report 5908187-6 (Version None)
Quarter: 2008Q4

REPORT INFORMATION
  Report Type: 
  Country: None (occurrence: None)
  Receive Date: 20081003
  Receipt Date: 20081001
  Transmission Date: 20090506
  Serious: Yes (Other)
  Sender: FDA-Public Use
  Company Number: US-ALLERGAN-0809871US

PATIENT

DRUGS (9)
  1. ZYMAR [Suspect]
     Indication: POSTOPERATIVE CARE
     Route: 047
  2. LEVOBUNOLOL HCL, 0.5% [Suspect]
     Indication: POSTOPERATIVE CARE
     Route: 047
  3. FLURBIPROFEN SODIUM 0.03% [Suspect]
     Indication: PREOPERATIVE CARE
     Route: 047
  4. PHENYLEPHRINE HYDROCHLORIDE [Suspect]
     Indication: PREOPERATIVE CARE
     Route: 047
  5. CYCLOPENTOLATE HYDROCHLORIDE [Suspect]
     Indication: PREOPERATIVE CARE
     Route: 047
  6. TETRACAINE HYDROCHLORIDE [Suspect]
     Indication: POSTOPERATIVE CARE
     Route: 047
  7. VIGAMOX [Suspect]
     Indication: POSTOPERATIVE CARE
     Route: 047
  8. VISCOAT [Suspect]
     Indication: POSTOPERATIVE CARE
  9. BSS [Suspect]
     Indication: POSTOPERATIVE CARE
     Route: 047

REACTIONS (1)
  - TOXIC ANTERIOR SEGMENT SYNDROME [None]
